FAERS Safety Report 18517983 (Version 8)
Quarter: 2022Q4

REPORT INFORMATION
  Report Type: Spontaneous
  Country: US (occurrence: US)
  Receive Date: 20201118
  Receipt Date: 20221214
  Transmission Date: 20230113
  Serious: Yes (Other)
  Sender: FDA-Public Use
  Company Number: US-PFIZER INC-2020451142

PATIENT
  Age: 69 Year
  Sex: Female

DRUGS (1)
  1. XELJANZ XR [Suspect]
     Active Substance: TOFACITINIB CITRATE
     Indication: Rheumatoid arthritis
     Dosage: 11 MG, 1X/DAY
     Route: 048

REACTIONS (24)
  - Fall [Unknown]
  - Foot fracture [Unknown]
  - Pelvic fracture [Unknown]
  - Spinal fracture [Unknown]
  - Upper limb fracture [Unknown]
  - Cardiac dysfunction [Unknown]
  - Systemic lupus erythematosus [Unknown]
  - Blood iron decreased [Unknown]
  - Haematocrit decreased [Unknown]
  - Hip fracture [Unknown]
  - Therapeutic response unexpected [Unknown]
  - Hair growth abnormal [Unknown]
  - Hypotension [Unknown]
  - Asthenia [Unknown]
  - Osteoporosis [Unknown]
  - COVID-19 [Recovered/Resolved]
  - Body temperature increased [Unknown]
  - Iron deficiency [Unknown]
  - Pallor [Unknown]
  - Dark circles under eyes [Unknown]
  - Pain [Unknown]
  - Limb discomfort [Unknown]
  - Ligament sprain [Unknown]
  - Anaemia [Unknown]

NARRATIVE: CASE EVENT DATE: 20200601
